FAERS Safety Report 19370845 (Version 1)
Quarter: 2021Q2

REPORT INFORMATION
  Report Type: Spontaneous
  Country: IL (occurrence: IL)
  Receive Date: 20210604
  Receipt Date: 20210604
  Transmission Date: 20210717
  Serious: Yes (Other)
  Sender: FDA-Public Use
  Company Number: IL-UCBSA-2021006466

PATIENT
  Age: 28 Year
  Sex: Female

DRUGS (1)
  1. CIMZIA [Suspect]
     Active Substance: CERTOLIZUMAB PEGOL
     Indication: ANKYLOSING SPONDYLITIS
     Dosage: 200 MILLIGRAM, EV 2 WEEKS(QOW)
     Dates: start: 202012, end: 2021

REACTIONS (6)
  - Injection site pruritus [Recovered/Resolved]
  - Cytomegalovirus infection [Unknown]
  - Injection site swelling [Recovered/Resolved]
  - Nausea [Recovered/Resolved]
  - C-reactive protein decreased [Unknown]
  - Urticaria [Unknown]

NARRATIVE: CASE EVENT DATE: 202105
